FAERS Safety Report 8138398-3 (Version None)
Quarter: 2012Q1

REPORT INFORMATION
  Report Type: 
  Country: None (occurrence: None)
  Receive Date: 20120215
  Receipt Date: 20120208
  Transmission Date: 20120608
  Serious: Yes (Other)
  Sender: FDA-Public Use
  Company Number: FR-JNJFOC-20120204616

PATIENT
  Age: 51 Year
  Sex: Female

DRUGS (1)
  1. KETOCONAZOLE [Suspect]
     Indication: FUNGAL INFECTION
     Route: 048
     Dates: start: 20120207

REACTIONS (2)
  - ACCIDENTAL EXPOSURE [None]
  - PRURITUS GENERALISED [None]
